FAERS Safety Report 14266575 (Version 2)
Quarter: 2018Q1

REPORT INFORMATION
  Report Type: Report from Study
  Country: NL (occurrence: NL)
  Receive Date: 20171211
  Receipt Date: 20180115
  Transmission Date: 20180508
  Serious: Yes (Hospitalization)
  Sender: FDA-Public Use
  Company Number: NL-ROCHE-2032613

PATIENT
  Age: 67 Year
  Sex: Male

DRUGS (5)
  1. TRASTUZUMAB. [Suspect]
     Active Substance: TRASTUZUMAB
     Indication: ADENOCARCINOMA
     Dosage: DATE OF MOST RECENT DOSE: 21/NOV/2017
     Route: 042
     Dates: start: 20171030
  2. AMOXICILLINE [Concomitant]
     Active Substance: AMOXICILLIN
  3. VERAPAMIL [Concomitant]
     Active Substance: VERAPAMIL HYDROCHLORIDE
     Route: 065
     Dates: start: 20171116
  4. TAMSULOSIN [Concomitant]
     Active Substance: TAMSULOSIN
     Dosage: +/- 0.4 MG
     Route: 065
     Dates: start: 20160122
  5. PERTUZUMAB. [Suspect]
     Active Substance: PERTUZUMAB
     Indication: ADENOCARCINOMA
     Dosage: DATE OF MOST RECENT DOSE: 21/NOV/2017, MAINTAINACE DOSE?LOADING DOSE AT: 840 MG (AS PER PROTOCOL)
     Route: 042
     Dates: start: 20171030

REACTIONS (1)
  - Pneumonitis [Not Recovered/Not Resolved]

NARRATIVE: CASE EVENT DATE: 20171126
